FAERS Safety Report 8979490 (Version 2)
Quarter: 2013Q1

REPORT INFORMATION
  Report Type: Spontaneous
  Country: DE (occurrence: DE)
  Receive Date: 20121221
  Receipt Date: 20130328
  Transmission Date: 20140127
  Serious: Yes (Other)
  Sender: FDA-Public Use
  Company Number: DE-UCBSA-073534

PATIENT
  Age: 64 Year
  Sex: Female

DRUGS (2)
  1. KEPPRA [Suspect]
     Indication: CONVULSION
     Dates: start: 2005
  2. KEPPRA [Suspect]
     Indication: CONVULSION
     Dosage: IN THE EVENING

REACTIONS (4)
  - Cerebrovascular accident [Unknown]
  - Thoracic vertebral fracture [Unknown]
  - Road traffic accident [Unknown]
  - Myalgia [Not Recovered/Not Resolved]
